FAERS Safety Report 4817129-6 (Version None)
Quarter: 2005Q3

REPORT INFORMATION
  Report Type: 
  Country: None (occurrence: None)
  Receive Date: 20050929
  Receipt Date: 20050613
  Transmission Date: 20060218
  Serious: No
  Sender: FDA-Public Use
  Company Number: 05P-163-0302959

PATIENT
  Age: 66 Year
  Sex: Female
  Weight: 68.9467 kg

DRUGS (6)
  1. HUMIRA [Suspect]
     Indication: PSORIATIC ARTHROPATHY
     Dosage: 40 MG, 1 IN 2 WK, SUBCUTANEOUS
     Route: 058
     Dates: start: 20030501, end: 20050531
  2. LEVOTHYROXINE SODIUM [Concomitant]
  3. ATORVASTATIN CALCIUM [Concomitant]
  4. ATENOLOL [Concomitant]
  5. ZOLPIDEM TARTRATE [Concomitant]
  6. ALENDRONATE SODIUM [Concomitant]

REACTIONS (4)
  - BURSITIS [None]
  - DERMATITIS CONTACT [None]
  - INCISION SITE HAEMORRHAGE [None]
  - JUVENILE MELANOMA BENIGN [None]
